FAERS Safety Report 18325293 (Version 1)
Quarter: 2020Q3

REPORT INFORMATION
  Report Type: Report from Study
  Country: US (occurrence: US)
  Receive Date: 20200929
  Receipt Date: 20200929
  Transmission Date: 20201103
  Serious: Yes (Hospitalization, Other)
  Sender: FDA-Public Use
  Company Number: US-JNJFOC-A-US2015-125431

PATIENT
  Age: 53 Year
  Sex: Female
  Weight: 65.76 kg

DRUGS (16)
  1. ALCOHOL. [Concomitant]
     Active Substance: ALCOHOL
  2. VELETRI [Suspect]
     Active Substance: EPOPROSTENOL
     Dosage: 27 NG/KG, PER MIN
     Route: 042
  3. VELETRI [Suspect]
     Active Substance: EPOPROSTENOL
     Dosage: 39 NG/KG, PER MIN
     Route: 042
  4. VELETRI [Suspect]
     Active Substance: EPOPROSTENOL
     Dosage: 46 NG/KG, PER MIN
     Route: 042
  5. REVATIO [Concomitant]
     Active Substance: SILDENAFIL CITRATE
  6. LETAIRIS [Concomitant]
     Active Substance: AMBRISENTAN
  7. IODINE. [Concomitant]
     Active Substance: IODINE
  8. VELETRI [Suspect]
     Active Substance: EPOPROSTENOL
     Indication: PULMONARY ARTERIAL HYPERTENSION
     Dosage: 50 NG/KG, PER MIN
     Route: 042
  9. VELETRI [Suspect]
     Active Substance: EPOPROSTENOL
     Dosage: 28 NG/KG, PER MIN
     Route: 042
     Dates: start: 20141124
  10. VELETRI [Suspect]
     Active Substance: EPOPROSTENOL
     Dosage: 32 NG/KG, PER MIN
     Route: 042
  11. VELETRI [Suspect]
     Active Substance: EPOPROSTENOL
     Dosage: 40 NG/KG, PER MIN
     Route: 042
  12. VELETRI [Suspect]
     Active Substance: EPOPROSTENOL
     Dosage: 49 UNK
     Route: 042
  13. VELETRI [Suspect]
     Active Substance: EPOPROSTENOL
     Route: 042
  14. VELETRI [Suspect]
     Active Substance: EPOPROSTENOL
     Dosage: 33.3 NG/KG, PER MIN
     Route: 042
  15. VELETRI [Suspect]
     Active Substance: EPOPROSTENOL
     Dosage: 43 NG/KG, PER MIN
     Route: 042
  16. COUMADIN [Concomitant]
     Active Substance: WARFARIN SODIUM

REACTIONS (55)
  - Pain [Unknown]
  - Nasopharyngitis [Unknown]
  - Musculoskeletal pain [Not Recovered/Not Resolved]
  - Flushing [Unknown]
  - Heart rate increased [Unknown]
  - Hot flush [Unknown]
  - Diarrhoea [Unknown]
  - Rash erythematous [Unknown]
  - Nephrolithiasis [Unknown]
  - Catheter site pain [Unknown]
  - Head injury [Unknown]
  - Fatigue [Unknown]
  - Unevaluable event [Unknown]
  - Urticaria [Unknown]
  - Thrombosis [Unknown]
  - Device dislocation [Unknown]
  - Myalgia [Not Recovered/Not Resolved]
  - Catheter site related reaction [Not Recovered/Not Resolved]
  - Catheter site infection [Unknown]
  - Catheter site discharge [Unknown]
  - Catheter site oedema [Unknown]
  - Catheter site discolouration [Unknown]
  - Muscle spasms [Unknown]
  - Arthralgia [Unknown]
  - Palpitations [Unknown]
  - Pain in extremity [Not Recovered/Not Resolved]
  - Pharyngitis streptococcal [Not Recovered/Not Resolved]
  - Renal pain [Unknown]
  - Device use error [Unknown]
  - Product dose omission issue [Unknown]
  - Catheter site erythema [Unknown]
  - Kidney infection [Unknown]
  - Dyspnoea at rest [Not Recovered/Not Resolved]
  - Cardiac infection [Unknown]
  - Headache [Not Recovered/Not Resolved]
  - Skin discolouration [Unknown]
  - Dyspnoea [Not Recovered/Not Resolved]
  - Wound [Unknown]
  - Dyspnoea exertional [Not Recovered/Not Resolved]
  - Device related infection [Unknown]
  - Catheter removal [Unknown]
  - Pain in jaw [Unknown]
  - Rash [Unknown]
  - Chest pain [Unknown]
  - Fall [Unknown]
  - Product administration error [Unknown]
  - Adverse event [Unknown]
  - Insomnia [Unknown]
  - Bedridden [Unknown]
  - Bone pain [Unknown]
  - Catheter management [Unknown]
  - Chest discomfort [Unknown]
  - Drug intolerance [Unknown]
  - Memory impairment [Unknown]
  - Product administration interrupted [Unknown]

NARRATIVE: CASE EVENT DATE: 20170117
